FAERS Safety Report 9799933 (Version 4)
Quarter: 2014Q1

REPORT INFORMATION
  Report Type: Report from Study
  Country: US (occurrence: US)
  Receive Date: 20140106
  Receipt Date: 20140307
  Transmission Date: 20141002
  Serious: Yes (Life-Threatening, Hospitalization, Other)
  Sender: FDA-Public Use
  Company Number: US-PFIZER INC-2014000244

PATIENT
  Age: 71 Year
  Sex: Female
  Weight: 82.54 kg

DRUGS (3)
  1. IBUPROFEN [Suspect]
     Indication: OSTEOARTHRITIS
     Dosage: 600 MG, 3X/DAY
     Route: 048
     Dates: start: 20090113, end: 20120417
  2. IBUPROFEN [Suspect]
     Indication: RHEUMATOID ARTHRITIS
  3. NEXIUM [Concomitant]
     Indication: PROPHYLAXIS
     Dosage: 1X/DAY
     Route: 048
     Dates: start: 20090113, end: 20120417

REACTIONS (2)
  - Hypertensive emergency [Recovered/Resolved]
  - Angina pectoris [Recovered/Resolved]
